FAERS Safety Report 21790949 (Version 1)
Quarter: 2022Q4

REPORT INFORMATION
  Report Type: Spontaneous
  Country: US (occurrence: US)
  Receive Date: 20221228
  Receipt Date: 20221228
  Transmission Date: 20230112
  Serious: No
  Sender: FDA-Public Use
  Company Number: US-CLOVIS ONCOLOGY-CLO-2022-000223

PATIENT
  Sex: Female

DRUGS (1)
  1. RUBRACA [Suspect]
     Active Substance: RUCAPARIB CAMSYLATE
     Indication: Ovarian cancer
     Dosage: 200 MILLIGRAM, BID
     Route: 048
     Dates: start: 2020, end: 202201

REACTIONS (3)
  - Fall [Unknown]
  - Fatigue [Unknown]
  - Product dose omission issue [Unknown]
